FAERS Safety Report 13800817 (Version 10)
Quarter: 2021Q2

REPORT INFORMATION
  Report Type: Spontaneous
  Country: US (occurrence: US)
  Receive Date: 20170727
  Receipt Date: 20210413
  Transmission Date: 20210716
  Serious: Yes (Congenital Anomaly, Other)
  Sender: FDA-Public Use
  Company Number: PHEH2017US023084

PATIENT
  Sex: Male

DRUGS (4)
  1. ZOFRAN [Suspect]
     Active Substance: ONDANSETRON HYDROCHLORIDE
     Indication: FOETAL EXPOSURE DURING PREGNANCY
     Route: 064
  2. ONDANSETRON [Suspect]
     Active Substance: ONDANSETRON
     Indication: FOETAL EXPOSURE DURING PREGNANCY
     Dosage: MOTHER^S DOSE: 4 MG, PRN
     Route: 064
  3. ONDANSETRON HYDROCHLORIDE. [Suspect]
     Active Substance: ONDANSETRON HYDROCHLORIDE
     Indication: FOETAL EXPOSURE DURING PREGNANCY
     Dosage: MOTHER^S DOSE: 4 MG
     Route: 064
  4. ONDANSETRON [Suspect]
     Active Substance: ONDANSETRON
     Indication: FOETAL EXPOSURE DURING PREGNANCY
     Dosage: MOTHER^S DOSE: 4 MG, PRN
     Route: 064

REACTIONS (38)
  - Atrial septal defect [Unknown]
  - Croup infectious [Unknown]
  - Cough [Unknown]
  - Foreign body in respiratory tract [Unknown]
  - Speech disorder [Unknown]
  - Weight decreased [Unknown]
  - Decreased appetite [Unknown]
  - Ear pain [Unknown]
  - Viral infection [Unknown]
  - Right ventricular dilatation [Unknown]
  - Supraventricular extrasystoles [Unknown]
  - Pyrexia [Unknown]
  - Nasal congestion [Unknown]
  - Attention deficit hyperactivity disorder [Unknown]
  - Tibial torsion [Unknown]
  - Dyspnoea [Unknown]
  - Upper respiratory tract infection [Unknown]
  - Foetal exposure during pregnancy [Unknown]
  - Cardiac murmur [Unknown]
  - Otitis media acute [Unknown]
  - Constipation [Unknown]
  - Rhinorrhoea [Unknown]
  - Gait disturbance [Unknown]
  - Ventricular septal defect [Unknown]
  - Pericardial effusion [Unknown]
  - Foetal arrhythmia [Unknown]
  - Dermatitis atopic [Unknown]
  - Sneezing [Unknown]
  - Rash [Unknown]
  - Teething [Unknown]
  - Conjunctivitis [Unknown]
  - Eye discharge [Unknown]
  - Pharyngitis [Unknown]
  - Skin laceration [Unknown]
  - Vomiting [Unknown]
  - Behaviour disorder [Unknown]
  - Left-to-right cardiac shunt [Unknown]
  - Injury [Unknown]
